FAERS Safety Report 4894732-9 (Version None)
Quarter: 2006Q1

REPORT INFORMATION
  Report Type: 
  Country: None (occurrence: None)
  Receive Date: 20060127
  Receipt Date: 20060127
  Transmission Date: 20060701
  Serious: Yes (Death)
  Sender: FDA-Public Use
  Company Number: None

PATIENT
  Age: 51 Year
  Sex: Male
  Weight: 75 kg

DRUGS (1)
  1. ALDESLEUKIN 18 MILLION UNITS PER ML CHIRON [Suspect]
     Indication: METASTATIC MALIGNANT MELANOMA
     Dosage: 54 MILLION UNITS Q 8 HR IV
     Route: 042
     Dates: start: 20051230, end: 20050102

REACTIONS (1)
  - CARDIO-RESPIRATORY ARREST [None]
